FAERS Safety Report 15233253 (Version 2)
Quarter: 2019Q3

REPORT INFORMATION
  Report Type: Spontaneous
  Country: US (occurrence: US)
  Receive Date: 20180802
  Receipt Date: 20190829
  Transmission Date: 20191004
  Serious: Yes (Life-Threatening)
  Sender: FDA-Public Use
  Company Number: US-PFIZER INC-2018307608

PATIENT
  Age: 77 Year
  Sex: Male

DRUGS (7)
  1. AMIODARONE [Concomitant]
     Active Substance: AMIODARONE
     Indication: VENTRICULAR FIBRILLATION
     Dosage: UNK
  2. CLOPIDOGREL [Suspect]
     Active Substance: CLOPIDOGREL BISULFATE
     Indication: ELECTROCARDIOGRAM ST SEGMENT ELEVATION
     Dosage: UNK (LOADING DOSE)
  3. BIVALIRUDIN. [Suspect]
     Active Substance: BIVALIRUDIN
     Indication: ACUTE MYOCARDIAL INFARCTION
     Dosage: UNK
  4. ASA [Concomitant]
     Active Substance: ASPIRIN
     Dosage: 162 MG, UNK
  5. NITROGLYCERIN. [Concomitant]
     Active Substance: NITROGLYCERIN
     Indication: ELECTROCARDIOGRAM ST SEGMENT ELEVATION
     Dosage: 0.4 MG, UNK (SPRAY THREE TIMES, 5 MIN APART)
  6. TOPROL XL [Concomitant]
     Active Substance: METOPROLOL SUCCINATE
     Dosage: UNK
  7. ASA [Concomitant]
     Active Substance: ASPIRIN
     Indication: ELECTROCARDIOGRAM ST SEGMENT ELEVATION
     Dosage: UNK

REACTIONS (1)
  - Vascular stent thrombosis [Unknown]
